FAERS Safety Report 17685544 (Version 1)
Quarter: 2020Q2

REPORT INFORMATION
  Report Type: Spontaneous
  Country: US (occurrence: US)
  Receive Date: 20200420
  Receipt Date: 20200420
  Transmission Date: 20200714
  Serious: No
  Sender: FDA-Public Use
  Company Number: US-SA-2020SA102213

PATIENT
  Age: 11 Year
  Sex: Female

DRUGS (7)
  1. FABRAZYME [Suspect]
     Active Substance: AGALSIDASE BETA
     Indication: FABRY^S DISEASE
     Dosage: 55 MG, QOW
     Route: 042
     Dates: start: 20200227
  2. DIPHENHYDRAMINE. [Concomitant]
     Active Substance: DIPHENHYDRAMINE
  3. LMX4 [Concomitant]
     Active Substance: LIDOCAINE
  4. EPINEPHRINE. [Concomitant]
     Active Substance: EPINEPHRINE
  5. STERILE WATER [Concomitant]
     Active Substance: WATER
  6. ACETAMINOPHEN. [Concomitant]
     Active Substance: ACETAMINOPHEN
  7. NORMAL SALINE [Concomitant]
     Active Substance: SODIUM CHLORIDE

REACTIONS (1)
  - Scarlet fever [Recovered/Resolved]

NARRATIVE: CASE EVENT DATE: 20200315
